FAERS Safety Report 7062132-1 (Version None)
Quarter: 2010Q4

REPORT INFORMATION
  Report Type: 
  Country: None (occurrence: None)
  Receive Date: 20101026
  Receipt Date: 20101020
  Transmission Date: 20110411
  Serious: Yes (Death, Hospitalization, Disabling, Other)
  Sender: FDA-Public Use
  Company Number: PHHY2010JP36326

PATIENT
  Sex: Female
  Weight: 87 kg

DRUGS (8)
  1. AFINITOR [Suspect]
     Indication: METASTATIC RENAL CELL CARCINOMA
     Dosage: 10 MG
     Route: 048
     Dates: start: 20100422, end: 20100520
  2. SUMIFERON [Concomitant]
     Indication: METASTATIC RENAL CELL CARCINOMA
     Dosage: 3000000IU
     Dates: start: 20080623, end: 20090914
  3. SUTENT [Concomitant]
     Indication: METASTATIC RENAL CELL CARCINOMA
     Dosage: 37.5 MG
     Route: 048
     Dates: start: 20090915, end: 20100328
  4. UFT [Concomitant]
     Indication: METASTATIC RENAL CELL CARCINOMA
     Dosage: UNK
     Route: 048
     Dates: start: 20010315, end: 20090908
  5. ZYLORIC [Concomitant]
     Dosage: 200 MG
     Route: 048
     Dates: start: 20100422
  6. TAKEPRON [Concomitant]
     Dosage: 30 MG
     Route: 048
     Dates: start: 20100422
  7. SELBEX [Concomitant]
     Dosage: 100 MG
     Route: 048
     Dates: start: 20100422
  8. BETAMETHASONE [Concomitant]
     Indication: METASTATIC RENAL CELL CARCINOMA
     Dosage: 1.0 MG
     Route: 048
     Dates: start: 20100422

REACTIONS (17)
  - BLOOD CREATININE INCREASED [None]
  - BLOOD GLUCOSE INCREASED [None]
  - BLOOD UREA INCREASED [None]
  - CELLULITIS [None]
  - COUGH [None]
  - DYSPNOEA [None]
  - GENERAL PHYSICAL HEALTH DETERIORATION [None]
  - GENERALISED OEDEMA [None]
  - INTERSTITIAL LUNG DISEASE [None]
  - LIVER DISORDER [None]
  - LUNG DISORDER [None]
  - LYMPHOCYTE COUNT DECREASED [None]
  - PULMONARY OEDEMA [None]
  - PYREXIA [None]
  - RENAL IMPAIRMENT [None]
  - RESPIRATORY DISORDER [None]
  - RESPIRATORY DISTRESS [None]
